FAERS Safety Report 11825651 (Version 3)
Quarter: 2017Q1

REPORT INFORMATION
  Report Type: Spontaneous
  Country: US (occurrence: US)
  Receive Date: 20151211
  Receipt Date: 20170314
  Transmission Date: 20170428
  Serious: Yes (Other)
  Sender: FDA-Public Use
  Company Number: US-JNJFOC-20150713249

PATIENT
  Sex: Male

DRUGS (17)
  1. GLUCOSAMINE [Concomitant]
     Active Substance: GLUCOSAMINE
  2. IMBRUVICA [Suspect]
     Active Substance: IBRUTINIB
     Indication: CHRONIC LYMPHOCYTIC LEUKAEMIA
     Route: 048
     Dates: start: 20151215
  3. IMBRUVICA [Suspect]
     Active Substance: IBRUTINIB
     Indication: CHRONIC LYMPHOCYTIC LEUKAEMIA
     Route: 048
     Dates: start: 2015
  4. DEPAKOTE [Concomitant]
     Active Substance: DIVALPROEX SODIUM
  5. TERBINAFINE. [Concomitant]
     Active Substance: TERBINAFINE
  6. OMEPRAZOLE. [Concomitant]
     Active Substance: OMEPRAZOLE
  7. IMBRUVICA [Suspect]
     Active Substance: IBRUTINIB
     Indication: CHRONIC LYMPHOCYTIC LEUKAEMIA
     Route: 048
     Dates: start: 20150730, end: 2015
  8. LISINOPRIL. [Concomitant]
     Active Substance: LISINOPRIL
  9. DONEPEZIL. [Concomitant]
     Active Substance: DONEPEZIL
  10. LOVASTATIN. [Concomitant]
     Active Substance: LOVASTATIN
  11. VITAMIN B COMPLEX [Concomitant]
     Active Substance: CYANOCOBALAMIN\DEXPANTHENOL\NIACINAMIDE\PYRIDOXINE HYDROCHLORIDE\RIBOFLAVIN 5^-PHOSPHATE SODIUM\THIAMINE HYDROCHLORIDE\VITAMIN B COMPLEX
  12. DYMISTA [Concomitant]
     Active Substance: AZELASTINE HYDROCHLORIDE\FLUTICASONE PROPIONATE
  13. ZYRTEC [Concomitant]
     Active Substance: CETIRIZINE HYDROCHLORIDE
  14. LEVOTHYROXINE. [Concomitant]
     Active Substance: LEVOTHYROXINE
  15. VITAMIN D3 [Concomitant]
     Active Substance: CHOLECALCIFEROL
  16. AMLODIPINE [Concomitant]
     Active Substance: AMLODIPINE BESYLATE
  17. ASPIRIN. [Concomitant]
     Active Substance: ASPIRIN

REACTIONS (3)
  - Dizziness [Unknown]
  - Renal impairment [Unknown]
  - Acute kidney injury [Unknown]
